FAERS Safety Report 8715363 (Version 2)
Quarter: 2013Q1

REPORT INFORMATION
  Report Type: Report from Study
  Country: FR (occurrence: FR)
  Receive Date: 20120809
  Receipt Date: 20130219
  Transmission Date: 20140127
  Serious: Yes (Other)
  Sender: FDA-Public Use
  Company Number: FR-VIIV HEALTHCARE LIMITED-B0821627A

PATIENT
  Age: 56 Year
  Sex: Male
  Weight: 65.5 kg

DRUGS (6)
  1. MARAVIROC [Suspect]
     Indication: HIV INFECTION
     Dosage: 300MG TWICE PER DAY
     Route: 065
     Dates: start: 20120412, end: 20120801
  2. RALTEGRAVIR [Suspect]
     Indication: HIV INFECTION
     Dosage: 400MG TWICE PER DAY
     Route: 065
     Dates: start: 20120412, end: 20120801
  3. METFORMIN [Concomitant]
     Indication: DIABETES MELLITUS
     Dosage: 1000MG TWICE PER DAY
     Route: 065
     Dates: start: 20111125, end: 20120801
  4. LEVOTHYROX [Concomitant]
     Indication: HYPOTHYROIDISM
     Dosage: 125MG PER DAY
     Dates: start: 20051223
  5. KENZEN [Concomitant]
     Indication: HYPERTENSION
     Dosage: 16MG PER DAY
     Dates: start: 20080711
  6. ESIDREX [Concomitant]
     Indication: HYPERTENSION
     Dosage: 25MG PER DAY
     Dates: start: 20090116

REACTIONS (1)
  - Acute hepatitis B [Recovering/Resolving]
